FAERS Safety Report 8391311-6 (Version None)
Quarter: 2012Q2

REPORT INFORMATION
  Report Type: 
  Country: None (occurrence: None)
  Receive Date: 20120529
  Receipt Date: 20120409
  Transmission Date: 20120825
  Serious: No
  Sender: FDA-Public Use
  Company Number: US-ABBOTT-12P-163-0924531-00

PATIENT
  Sex: Female
  Weight: 54.48 kg

DRUGS (2)
  1. UNKNOWN MEDICATION [Concomitant]
     Indication: RHEUMATOID ARTHRITIS
  2. ZEMPLAR [Suspect]
     Indication: PARATHYROID DISORDER
     Route: 048
     Dates: start: 20120405

REACTIONS (1)
  - DIARRHOEA [None]
